FAERS Safety Report 5257655-1 (Version None)
Quarter: 2007Q1

REPORT INFORMATION
  Report Type: 
  Country: None (occurrence: None)
  Receive Date: 20061220
  Receipt Date: 20061101
  Transmission Date: 20070707
  Serious: No
  Sender: FDA-Public Use
  Company Number: 2006RL000407

PATIENT
  Age: 47 Year
  Sex: Male
  Weight: 107.0489 kg

DRUGS (2)
  1. OMACOR [Suspect]
     Indication: BLOOD TRIGLYCERIDES INCREASED
     Dosage: 4 GM;QD;PO
     Route: 048
     Dates: start: 20061010, end: 20061024
  2. TRICOR [Concomitant]

REACTIONS (1)
  - DIARRHOEA [None]
